FAERS Safety Report 26169959 (Version 1)
Quarter: 2025Q4

REPORT INFORMATION
  Report Type: Spontaneous
  Country: EU (occurrence: EU)
  Receive Date: 20251217
  Receipt Date: 20251217
  Transmission Date: 20260117
  Serious: Yes (Death, Hospitalization, Other)
  Sender: B. BRAUN MEDICAL INC.
  Company Number: None

PATIENT
  Age: 67 Year
  Sex: Male

DRUGS (5)
  1. METRONIDAZOLE [Suspect]
     Active Substance: METRONIDAZOLE
     Dosage: DOSE: 500 UNIT UNKNOWN
     Dates: start: 20210627, end: 20210627
  2. BISEPTOL [Suspect]
     Active Substance: SULFAMETHOXAZOLE\TRIMETHOPRIM
     Dates: start: 20210622, end: 20210622
  3. CEFUROXIME SODIUM [Suspect]
     Active Substance: CEFUROXIME SODIUM
     Dates: start: 20210613, end: 20210622
  4. LINEZOLID [Suspect]
     Active Substance: LINEZOLID
     Dates: start: 20210623, end: 20210627
  5. VANCOMYCIN [Suspect]
     Active Substance: VANCOMYCIN
     Dosage: DOSE: 500 UNIT UNKNOWN
     Dates: start: 20210627, end: 20210628

REACTIONS (32)
  - Muscular weakness [Fatal]
  - Posture abnormal [Fatal]
  - Sluggishness [Fatal]
  - Acute respiratory failure [Fatal]
  - General physical health deterioration [Fatal]
  - Cerebral haemorrhage [Fatal]
  - Brain oedema [Fatal]
  - Brain herniation [Fatal]
  - Hypokalaemia [Fatal]
  - Anaemia [Fatal]
  - Cerebral haematoma [Fatal]
  - General physical condition abnormal [Fatal]
  - Cognitive disorder [Fatal]
  - Quadriparesis [Fatal]
  - Heart rate increased [Fatal]
  - Epilepsy [Fatal]
  - Tachycardia [Fatal]
  - Unresponsive to stimuli [Fatal]
  - Agitation [Fatal]
  - Atrial fibrillation [Fatal]
  - Altered state of consciousness [Fatal]
  - Septic shock [Fatal]
  - Hypotension [Fatal]
  - Extensor plantar response [Fatal]
  - Tachypnoea [Fatal]
  - Pallor [Fatal]
  - Pyramidal tract syndrome [Fatal]
  - Blood sodium increased [Fatal]
  - Diarrhoea [Fatal]
  - Clostridium test positive [Fatal]
  - Skin disorder [Fatal]
  - Loss of consciousness [Fatal]

NARRATIVE: CASE EVENT DATE: 20210613
